FAERS Safety Report 14365373 (Version 1)
Quarter: 2018Q1

REPORT INFORMATION
  Report Type: Report from Study
  Country: None (occurrence: NL)
  Receive Date: 20180108
  Receipt Date: 20180108
  Transmission Date: 20180509
  Serious: Yes (Hospitalization)
  Sender: FDA-Public Use
  Company Number: NL-ABBVIE-18S-114-2214966-00

PATIENT
  Age: 1 Month
  Sex: Male
  Weight: 3.87 kg

DRUGS (2)
  1. SYNAGIS [Suspect]
     Active Substance: PALIVIZUMAB
     Indication: ANTIVIRAL PROPHYLAXIS
     Route: 030
     Dates: start: 20171207, end: 20171207
  2. SYNAGIS [Suspect]
     Active Substance: PALIVIZUMAB
     Route: 030
     Dates: start: 20180104, end: 20180104

REACTIONS (5)
  - Dyskinesia [Recovered/Resolved]
  - Pallor [Not Recovered/Not Resolved]
  - Depressed level of consciousness [Recovered/Resolved]
  - Apnoea [Recovered/Resolved]
  - Tongue discolouration [Recovered/Resolved]

NARRATIVE: CASE EVENT DATE: 20171221
